FAERS Safety Report 25928491 (Version 3)
Quarter: 2025Q4

REPORT INFORMATION
  Report Type: Spontaneous
  Country: EU (occurrence: EU)
  Receive Date: 20251016
  Receipt Date: 20251202
  Transmission Date: 20260119
  Serious: Yes (Other)
  Sender: Kenvue
  Company Number: EU-ELI_LILLY_AND_COMPANY-ES202508004861

PATIENT
  Age: 63 Year

DRUGS (11)
  1. LOPERAMIDE HYDROCHLORIDE [Suspect]
     Active Substance: LOPERAMIDE HYDROCHLORIDE
     Indication: Diarrhoea
     Dosage: UNK UNK, UNKNOWN
     Route: 065
  2. ABEMACICLIB [Suspect]
     Active Substance: ABEMACICLIB
     Indication: Breast cancer
     Dosage: 50 MG, UNKNOWN
  3. ABEMACICLIB [Suspect]
     Active Substance: ABEMACICLIB
     Dosage: 100 MG, UNKNOWN
  4. ABEMACICLIB [Suspect]
     Active Substance: ABEMACICLIB
     Dosage: 100 MG, UNKNOWN
  5. CALCIUM [Suspect]
     Active Substance: CALCIUM
     Indication: Product used for unknown indication
     Dosage: UNK UNK, UNKNOWN
     Route: 065
  6. METFORMIN [Suspect]
     Active Substance: METFORMIN HYDROCHLORIDE
     Indication: Blood glucose increased
     Dosage: UNK UNK, UNKNOWN
     Route: 065
  7. OMEPRAZOLE [Suspect]
     Active Substance: OMEPRAZOLE
     Indication: Product used for unknown indication
     Dosage: UNK UNK, UNKNOWN
     Route: 065
  8. LETROZOLE [Concomitant]
     Active Substance: LETROZOLE
     Indication: Breast cancer
     Dosage: UNK UNK, UNKNOWN
     Route: 065
  9. FOLIC ACID [Concomitant]
     Active Substance: FOLIC ACID
     Indication: Product used for unknown indication
     Dosage: UNK UNK, UNKNOWN
     Route: 065
  10. IRON [Concomitant]
     Active Substance: IRON
     Indication: Product used for unknown indication
     Dosage: UNK UNK, UNKNOWN
     Route: 065
  11. JARDIANCE [Concomitant]
     Active Substance: EMPAGLIFLOZIN
     Indication: Blood glucose increased
     Dosage: 10 MG, DAILY
     Route: 065

REACTIONS (33)
  - Diarrhoea [Recovering/Resolving]
  - Sensation of foreign body [Recovering/Resolving]
  - Irritable bowel syndrome [Recovering/Resolving]
  - Feeling abnormal [Recovering/Resolving]
  - Tooth injury [Recovering/Resolving]
  - Dental restoration failure [Recovering/Resolving]
  - Hair colour changes [Recovering/Resolving]
  - Haemorrhoidal haemorrhage [Recovering/Resolving]
  - Depression [Recovering/Resolving]
  - Ageusia [Recovering/Resolving]
  - Haemorrhoids [Recovering/Resolving]
  - Malaise [Recovering/Resolving]
  - Anxiety [Recovering/Resolving]
  - Abdominal discomfort [Recovering/Resolving]
  - Flatulence [Recovering/Resolving]
  - Abdominal distension [Recovering/Resolving]
  - Apathy [Recovering/Resolving]
  - Abdominal pain upper [Recovering/Resolving]
  - Depressed mood [Recovering/Resolving]
  - Blood phosphorus increased [Recovering/Resolving]
  - Hunger [Recovering/Resolving]
  - Gastrointestinal sounds abnormal [Recovering/Resolving]
  - Tumour marker increased [Recovering/Resolving]
  - Peripheral swelling [Recovering/Resolving]
  - Alopecia [Recovering/Resolving]
  - Nausea [Recovering/Resolving]
  - Decreased appetite [Recovering/Resolving]
  - Fatigue [Recovering/Resolving]
  - Retching [Recovering/Resolving]
  - Dyspepsia [Recovering/Resolving]
  - Dysgeusia [Recovering/Resolving]
  - Nasopharyngitis [Recovering/Resolving]
  - Stomatitis [Recovering/Resolving]
